FAERS Safety Report 5836799-7 (Version None)
Quarter: 2008Q3

REPORT INFORMATION
  Report Type: 
  Country: None (occurrence: None)
  Receive Date: 20080807
  Receipt Date: 20080805
  Transmission Date: 20090109
  Serious: Yes (Other)
  Sender: FDA-Public Use
  Company Number: FR-AVENTIS-200812686FR

PATIENT
  Age: 73 Year
  Sex: Female

DRUGS (18)
  1. LASIX [Suspect]
     Indication: DRUG USE FOR UNKNOWN INDICATION
     Route: 048
     Dates: start: 20080612, end: 20080615
  2. ELISOR [Suspect]
     Route: 048
     Dates: end: 20080616
  3. PROTEASE INHIBITORS [Suspect]
     Route: 048
     Dates: end: 20080618
  4. NORVIR [Suspect]
     Route: 048
     Dates: end: 20080618
  5. DIFFU K [Suspect]
     Route: 048
     Dates: end: 20080618
  6. SUSTIVA [Suspect]
     Route: 048
     Dates: end: 20080618
  7. UN-ALFA [Suspect]
     Indication: DRUG USE FOR UNKNOWN INDICATION
     Route: 048
     Dates: start: 20080531, end: 20080618
  8. BICARBONATE [Suspect]
     Indication: DRUG USE FOR UNKNOWN INDICATION
     Route: 048
     Dates: end: 20080618
  9. STABLON [Suspect]
     Indication: DRUG USE FOR UNKNOWN INDICATION
     Route: 048
     Dates: start: 20080613, end: 20080618
  10. FLAGYL [Concomitant]
     Indication: DRUG USE FOR UNKNOWN INDICATION
     Route: 048
     Dates: start: 20080528
  11. ZELITREX [Concomitant]
     Route: 048
  12. BACTRIM [Concomitant]
     Route: 048
  13. EUCALCIC [Concomitant]
     Route: 048
     Dates: start: 20080528
  14. MOPRAL [Concomitant]
     Indication: DRUG USE FOR UNKNOWN INDICATION
     Route: 048
  15. LEVOTHYROX [Concomitant]
     Indication: HYPOTHYROIDISM
     Route: 048
  16. CALCIPARINE [Concomitant]
     Indication: DRUG USE FOR UNKNOWN INDICATION
     Route: 058
     Dates: start: 20080615
  17. AVLOCARDYL [Concomitant]
     Route: 048
  18. AZADOSE [Concomitant]
     Indication: DRUG USE FOR UNKNOWN INDICATION
     Route: 048
     Dates: start: 20080522

REACTIONS (1)
  - RHABDOMYOLYSIS [None]
